FAERS Safety Report 9767858 (Version 1)
Quarter: 2013Q4

REPORT INFORMATION
  Report Type: Spontaneous
  Country: US (occurrence: US)
  Receive Date: 20131217
  Receipt Date: 20131217
  Transmission Date: 20140711
  Serious: No
  Sender: FDA-Public Use
  Company Number: US-PFIZER INC-2013355817

PATIENT
  Sex: Female

DRUGS (6)
  1. CELECOXIB [Suspect]
     Dosage: UNK
  2. SEPTRA [Suspect]
     Dosage: UNK
  3. CELEBREX [Suspect]
     Dosage: UNK
  4. CODEINE [Suspect]
     Dosage: UNK
  5. KETOPROFEN [Suspect]
     Dosage: UNK
  6. PLAQUENIL [Suspect]
     Dosage: UNK

REACTIONS (1)
  - Drug hypersensitivity [Unknown]
